APPROVED DRUG PRODUCT: GRISACTIN
Active Ingredient: GRISEOFULVIN, MICROCRYSTALLINE
Strength: 125MG
Dosage Form/Route: CAPSULE;ORAL
Application: N050051 | Product #002
Applicant: WYETH AYERST LABORATORIES
Approved: Approved Prior to Jan 1, 1982 | RLD: No | RS: No | Type: DISCN